FAERS Safety Report 16438858 (Version 1)
Quarter: 2019Q2

REPORT INFORMATION
  Report Type: Spontaneous
  Country: US (occurrence: US)
  Receive Date: 20190508
  Receipt Date: 20190508
  Transmission Date: 20190711
  Serious: Yes (Disabling)
  Sender: FDA-Public Use
  Company Number: None

PATIENT
  Age: 78 Year
  Sex: Male
  Weight: 88 kg

DRUGS (9)
  1. CRESTOR [Concomitant]
     Active Substance: ROSUVASTATIN CALCIUM
  2. METFORMIN [Concomitant]
     Active Substance: METFORMIN HYDROCHLORIDE
  3. TAMSULOSIN [Concomitant]
     Active Substance: TAMSULOSIN
  4. RISPERIDONE. [Concomitant]
     Active Substance: RISPERIDONE
  5. METOPROLOL. [Concomitant]
     Active Substance: METOPROLOL
  6. ZESTORETIC [Concomitant]
     Active Substance: HYDROCHLOROTHIAZIDE\LISINOPRIL
  7. PREDNISONE TAB 10MG [Suspect]
     Active Substance: PREDNISONE
     Indication: OROPHARYNGEAL PAIN
     Dosage: 4 TABS PO X 3 DAYS?3 TABS PO X 3 DAYS?2 TABS PO X 2 DAYS ?1 TAB PO X 1 DAY
     Route: 048
     Dates: start: 20171120, end: 20171201
  8. FERROUS SULFATE. [Concomitant]
     Active Substance: FERROUS SULFATE
  9. AMARYL [Concomitant]
     Active Substance: GLIMEPIRIDE

REACTIONS (11)
  - Visual impairment [None]
  - Blood potassium decreased [None]
  - Insomnia [None]
  - Asthenia [None]
  - Headache [None]
  - Abnormal behaviour [None]
  - Lipohypertrophy [None]
  - Tremor [None]
  - Seizure [None]
  - Irritability [None]
  - Fatigue [None]

NARRATIVE: CASE EVENT DATE: 20171122
